FAERS Safety Report 14076283 (Version 1)
Quarter: 2017Q4

REPORT INFORMATION
  Report Type: Spontaneous
  Country: US (occurrence: US)
  Receive Date: 20171011
  Receipt Date: 20171011
  Transmission Date: 20180321
  Serious: No
  Sender: FDA-Public Use
  Company Number: US-PFIZER INC-2017040518

PATIENT
  Age: 9 Year
  Sex: Male
  Weight: 25 kg

DRUGS (4)
  1. BENEFIX [Suspect]
     Active Substance: COAGULATION FACTOR IX RECOMBINANT HUMAN\ISOPROPYL ALCOHOL
     Indication: HAEMORRHAGE
     Dosage: 2600 UNITS (+/-5%) (100 UNITS/KG DAILY ON DEMAND FOR BLEEDS), # OF DOSES: 4
  2. BENEFIX [Suspect]
     Active Substance: COAGULATION FACTOR IX RECOMBINANT HUMAN\ISOPROPYL ALCOHOL
     Dosage: 3000 UNITS (+5%) (100 U/KG FOR BLEEDS ON DEMAND), # OF DOSES: 3
  3. BENEFIX [Suspect]
     Active Substance: COAGULATION FACTOR IX RECOMBINANT HUMAN\ISOPROPYL ALCOHOL
     Dosage: 2500 IU (+5%) (100 U/KG FOR BLEEDS ON DEMAND), # OF DOSES: 3
  4. BENEFIX [Suspect]
     Active Substance: COAGULATION FACTOR IX RECOMBINANT HUMAN\ISOPROPYL ALCOHOL
     Indication: FACTOR IX DEFICIENCY
     Dosage: 2600 UNITS (+/-5%) (100 UNITS/KG DAILY ON DEMAND ), # OF DOSES: 3

REACTIONS (2)
  - Swelling [Unknown]
  - Laceration [Unknown]
